FAERS Safety Report 4960611-1 (Version None)
Quarter: 2006Q2

REPORT INFORMATION
  Report Type: 
  Country: None (occurrence: None)
  Receive Date: 20060403
  Receipt Date: 20050923
  Transmission Date: 20061013
  Serious: Yes (Hospitalization, Disabling)
  Sender: FDA-Public Use
  Company Number: US-MERCK-0509USA03941

PATIENT
  Age: 60 Year
  Sex: Female
  Weight: 88 kg

DRUGS (3)
  1. PAXIL [Concomitant]
     Indication: DEPRESSION
     Route: 048
     Dates: start: 19980101
  2. VIOXX [Suspect]
     Indication: SHOULDER PAIN
     Route: 048
     Dates: start: 20000701, end: 20000930
  3. ASPIRIN [Suspect]
     Route: 048
     Dates: start: 19990101, end: 20040101

REACTIONS (4)
  - BLOOD PRESSURE INCREASED [None]
  - OSTEOARTHRITIS [None]
  - POLYTRAUMATISM [None]
  - TRANSIENT ISCHAEMIC ATTACK [None]
